FAERS Safety Report 19749491 (Version 2)
Quarter: 2021Q4

REPORT INFORMATION
  Report Type: Spontaneous
  Country: DE (occurrence: DE)
  Receive Date: 20210826
  Receipt Date: 20211220
  Transmission Date: 20220303
  Serious: Yes (Hospitalization, Other)
  Sender: FDA-Public Use
  Company Number: DE-002147023-NVSC2021DE047241

PATIENT
  Age: 73 Year
  Sex: Male

DRUGS (30)
  1. IMATINIB [Suspect]
     Active Substance: IMATINIB
     Indication: Acute lymphocytic leukaemia
     Dosage: UNK
     Route: 065
     Dates: start: 20180116
  2. IMATINIB [Suspect]
     Active Substance: IMATINIB
     Dosage: 200 MILLIGRAM, QD (200 MG, QD (2X200MG))
     Route: 065
     Dates: start: 20200221
  3. DEXAMETHASONE [Suspect]
     Active Substance: DEXAMETHASONE
     Indication: Acute lymphocytic leukaemia
     Dosage: 10 MILLIGRAM PER CUBIC METRE (10 MG/M? (FREQUENCY DAY 1-5))
     Route: 065
     Dates: start: 20180111, end: 20180115
  4. DEXAMETHASONE [Suspect]
     Active Substance: DEXAMETHASONE
     Dosage: 21 MILLIGRAM, QD
     Route: 065
     Dates: start: 20211003, end: 20211007
  5. METHOTREXATE [Suspect]
     Active Substance: METHOTREXATE
     Indication: Acute lymphocytic leukaemia
     Dosage: 12 MILLIGRAM (12 MG (ON DAY 01))
     Route: 037
     Dates: start: 20180111, end: 20180111
  6. METHOTREXATE [Suspect]
     Active Substance: METHOTREXATE
     Dosage: UNK
     Route: 065
     Dates: start: 20180226, end: 2018
  7. METHOTREXATE [Suspect]
     Active Substance: METHOTREXATE
     Dosage: UNK
     Route: 065
     Dates: start: 20181105, end: 2018
  8. METHOTREXATE [Suspect]
     Active Substance: METHOTREXATE
     Dosage: UNK
     Route: 065
  9. CYTARABINE [Suspect]
     Active Substance: CYTARABINE
     Indication: Acute lymphocytic leukaemia
     Dosage: UNK, START 23-APR-2018
     Route: 065
     Dates: end: 2018
  10. CYTARABINE [Suspect]
     Active Substance: CYTARABINE
     Dosage: 500 MILLIGRAM/SQ. METER (500 MG/M2 (ON DAY 1,3,5)), START 15-JAN-2019
     Route: 065
     Dates: end: 20190119
  11. CYTARABINE [Suspect]
     Active Substance: CYTARABINE
     Dosage: 40 MILLIGRAM (40 MG (DAY 14), START 28-JAN-2019
     Route: 037
     Dates: end: 20190128
  12. CYTARABINE [Suspect]
     Active Substance: CYTARABINE
     Dosage: 500 MILLIGRAM/SQ. METER (500 MG/M2 (ON DAY 1,3,5)), START 25-MAR-2019
     Route: 065
     Dates: end: 20190329
  13. CYTARABINE [Suspect]
     Active Substance: CYTARABINE
     Dosage: 40 MILLIGRAM (40 MG (FREQUENCY: DAY 14)), START 07-APR-2019
     Route: 037
     Dates: end: 20190407
  14. CYCLOPHOSPHAMIDE [Suspect]
     Active Substance: CYCLOPHOSPHAMIDE
     Indication: Acute lymphocytic leukaemia
     Dosage: 200 MILLIGRAM PER CUBIC METRE(200 MG/M? (FREQUENCY DAY 3-5))
     Route: 065
     Dates: start: 20180113, end: 20180115
  15. ASPARAGINASE [Suspect]
     Active Substance: ASPARAGINASE
     Indication: Acute lymphocytic leukaemia
     Dosage: UNK, START 26-FEB-2018
     Route: 065
     Dates: end: 2018
  16. ASPARAGINASE [Suspect]
     Active Substance: ASPARAGINASE
     Dosage: UNK, START 05-NOV-2018
     Route: 065
     Dates: end: 2018
  17. ALDACTONE [Concomitant]
     Active Substance: SPIRONOLACTONE
     Indication: Product used for unknown indication
     Dosage: 1 DOSAGE FORM, QD (1 DF, QD)
     Route: 065
  18. ICLUSIG [Concomitant]
     Active Substance: PONATINIB
     Indication: Product used for unknown indication
     Dosage: 1 DOSAGE FORM, QD (1 DF, QD)
     Route: 065
  19. ALLOPURINOL [Concomitant]
     Active Substance: ALLOPURINOL
     Indication: Product used for unknown indication
     Dosage: 1 DOSAGE FORM, QD (1 DF, QD)
     Route: 065
  20. LACTULOSE [Concomitant]
     Active Substance: LACTULOSE
     Indication: Product used for unknown indication
     Dosage: 3 MILLILITER, QD (1 ML, TID (667 G/L))
     Route: 065
  21. PANTOPRAZOLE SODIUM [Concomitant]
     Active Substance: PANTOPRAZOLE SODIUM
     Indication: Product used for unknown indication
     Dosage: 1 DOSAGE FORM, QD (1 DF, QD)
     Route: 065
  22. METFORMIN HYDROCHLORIDE [Concomitant]
     Active Substance: METFORMIN HYDROCHLORIDE
     Indication: Product used for unknown indication
     Dosage: 2 DOSAGE FORM, QD (1 DF, BID)
     Route: 065
  23. BISOPROLOL [Concomitant]
     Active Substance: BISOPROLOL
     Indication: Product used for unknown indication
     Dosage: 1 DOSAGE FORM, QD (1 DF, QD)
     Route: 065
  24. TORSEMIDE [Concomitant]
     Active Substance: TORSEMIDE
     Indication: Product used for unknown indication
     Dosage: 1 DOSAGE FORM, QD (1 DF, QD)
     Route: 065
  25. TORSEMIDE [Concomitant]
     Active Substance: TORSEMIDE
     Dosage: 5 MILLIGRAM, QD
     Route: 065
  26. VALSARTAN [Concomitant]
     Active Substance: VALSARTAN
     Indication: Product used for unknown indication
     Dosage: 1 DOSAGE FORM, QD (1 DF, QD)
     Route: 065
  27. MOVICOL [Concomitant]
     Active Substance: POLYETHYLENE GLYCOL 3350\POTASSIUM CHLORIDE\SODIUM BICARBONATE\SODIUM CHLORIDE
     Indication: Product used for unknown indication
     Dosage: 3 DOSAGE FORM, QD (1 DF, TID (POWDER FOR PREPARATION FOR ORAL USE))
     Route: 065
  28. SIMVASTATIN [Concomitant]
     Active Substance: SIMVASTATIN
     Indication: Product used for unknown indication
     Dosage: 1 DOSAGE FORM, QD (1 DF, QD)
     Route: 065
  29. PIPERACILLIN AND TAZOBACTAM [Concomitant]
     Active Substance: PIPERACILLIN SODIUM\TAZOBACTAM SODIUM
     Indication: Product used for unknown indication
     Dosage: 3 DOSAGE FORM, QD (1 DF, TID)
     Route: 065
  30. SPIRONOLACTONE [Concomitant]
     Active Substance: SPIRONOLACTONE
     Indication: Product used for unknown indication
     Dosage: 50 MILLIGRAM, QD
     Route: 065

REACTIONS (43)
  - Acute lymphocytic leukaemia [Unknown]
  - Malignant neoplasm progression [Unknown]
  - Pyrexia [Recovering/Resolving]
  - Herpes simplex [Unknown]
  - Platelet count decreased [Unknown]
  - Cytokine release syndrome [Unknown]
  - Arteriosclerosis coronary artery [Unknown]
  - Neutropenia [Unknown]
  - Pancreatitis chronic [Unknown]
  - White blood cell count increased [Unknown]
  - Escherichia urinary tract infection [Unknown]
  - Acute lymphocytic leukaemia recurrent [Unknown]
  - Enterococcal infection [Recovered/Resolved with Sequelae]
  - Febrile infection [Unknown]
  - Costal cartilage fracture [Unknown]
  - Gastritis [Unknown]
  - Off label use [Unknown]
  - Blast cells present [Unknown]
  - Metamyelocyte count increased [Unknown]
  - Prothrombin time prolonged [Unknown]
  - Blood glucose increased [Unknown]
  - Blood chloride increased [Unknown]
  - Blood calcium increased [Unknown]
  - Procalcitonin increased [Unknown]
  - Gamma-glutamyltransferase increased [Unknown]
  - Lymphadenopathy [Unknown]
  - C-reactive protein increased [Unknown]
  - Activated partial thromboplastin time prolonged [Unknown]
  - Serum ferritin increased [Unknown]
  - Haemangioma [Unknown]
  - Weight decreased [Unknown]
  - Blood bilirubin increased [Unknown]
  - Monocyte count decreased [Unknown]
  - Blood lactate dehydrogenase increased [Unknown]
  - Euphoric mood [Unknown]
  - Diaphragmatic disorder [Unknown]
  - Hypotension [Unknown]
  - Lactose intolerance [Unknown]
  - Adrenomegaly [Unknown]
  - Red cell distribution width increased [Unknown]
  - Lymphocyte count decreased [Unknown]
  - Hepatic calcification [Unknown]
  - Neutrophil count decreased [Unknown]

NARRATIVE: CASE EVENT DATE: 20180127
